FAERS Safety Report 6662098-X (Version None)
Quarter: 2010Q1

REPORT INFORMATION
  Report Type: 
  Country: None (occurrence: None)
  Receive Date: 20100331
  Receipt Date: 20100322
  Transmission Date: 20100710
  Serious: Yes (Hospitalization)
  Sender: FDA-Public Use
  Company Number: DE-ELI_LILLY_AND_COMPANY-DE201003006179

PATIENT
  Sex: Male

DRUGS (4)
  1. ALIMTA [Suspect]
     Indication: LUNG ADENOCARCINOMA
     Dosage: 500 MG/M2, UNKNOWN
     Route: 042
  2. CARBOPLATIN [Concomitant]
     Indication: LUNG ADENOCARCINOMA
     Dosage: UNK, UNKNOWN
     Route: 065
  3. FOLIC ACID [Concomitant]
     Dosage: 0.4 MG, UNKNOWN
     Route: 065
  4. FOLIC ACID [Concomitant]
     Dosage: 0.4 MG, 2/D
     Route: 065

REACTIONS (4)
  - APHTHOUS STOMATITIS [None]
  - DYSPHAGIA [None]
  - MUCOSAL EROSION [None]
  - OFF LABEL USE [None]
